FAERS Safety Report 25634120 (Version 1)
Quarter: 2025Q3

REPORT INFORMATION
  Report Type: Report from Study
  Country: US (occurrence: US)
  Receive Date: 20250801
  Receipt Date: 20250801
  Transmission Date: 20251021
  Serious: Yes (Death, Other)
  Sender: NOVARTIS
  Company Number: US-002147023-NVSC2025US081078

PATIENT
  Sex: Male

DRUGS (1)
  1. ENTRESTO [Suspect]
     Active Substance: SACUBITRIL\VALSARTAN
     Indication: Product used for unknown indication
     Dosage: UNK, BID, (49/51 MG)
     Route: 048
     Dates: start: 20241209

REACTIONS (6)
  - Death [Fatal]
  - Myelodysplastic syndrome [Unknown]
  - Cerebral haemorrhage [Unknown]
  - Cerebrovascular accident [Unknown]
  - Neoplasm malignant [Unknown]
  - Fall [Unknown]
